FAERS Safety Report 14434672 (Version 1)
Quarter: 2018Q1

REPORT INFORMATION
  Report Type: Spontaneous
  Country: FR (occurrence: FR)
  Receive Date: 20180124
  Receipt Date: 20180124
  Transmission Date: 20180509
  Serious: Yes (Other)
  Sender: FDA-Public Use
  Company Number: FR-MERCK KGAA-2040754

PATIENT
  Age: 67 Year
  Sex: Female

DRUGS (9)
  1. ALPRAZOLAM. [Concomitant]
     Active Substance: ALPRAZOLAM
  2. TAREG [Concomitant]
     Active Substance: VALSARTAN
  3. NOVOTHYROX [Suspect]
     Active Substance: LEVOTHYROXINE SODIUM
     Dates: start: 20170329
  4. CHLORAMINOPHENE [Concomitant]
     Active Substance: CHLORAMBUCIL
  5. ASPIRIN. [Concomitant]
     Active Substance: ASPIRIN
  6. NOVOTHYROX [Suspect]
     Active Substance: LEVOTHYROXINE SODIUM
     Indication: POST PROCEDURAL HYPOTHYROIDISM
     Dates: start: 20170329
  7. NOVOTHYROX [Suspect]
     Active Substance: LEVOTHYROXINE SODIUM
     Dates: end: 20171016
  8. MONO-TILDIEM [Concomitant]
     Active Substance: DILTIAZEM HYDROCHLORIDE
  9. RITUXIMAB. [Concomitant]
     Active Substance: RITUXIMAB

REACTIONS (14)
  - Hyperthyroidism [None]
  - Gait disturbance [Recovered/Resolved]
  - Muscle spasms [None]
  - Insomnia [Not Recovered/Not Resolved]
  - Abdominal distension [None]
  - Constipation [Recovered/Resolved]
  - Tachycardia [None]
  - Fatigue [None]
  - Muscle disorder [None]
  - Headache [Not Recovered/Not Resolved]
  - Stress [None]
  - Depression [None]
  - Abdominal pain upper [None]
  - Dyspepsia [Recovered/Resolved]

NARRATIVE: CASE EVENT DATE: 2017
